FAERS Safety Report 6389134-2 (Version None)
Quarter: 2009Q4

REPORT INFORMATION
  Report Type: 
  Country: None (occurrence: None)
  Receive Date: 20091006
  Receipt Date: 20090925
  Transmission Date: 20100525
  Serious: Yes (Other)
  Sender: FDA-Public Use
  Company Number: US-CELGENEUS-163-21880-09092128

PATIENT
  Sex: Male

DRUGS (2)
  1. REVLIMID [Suspect]
     Indication: MULTIPLE MYELOMA
     Route: 048
     Dates: start: 20081107, end: 20090601
  2. REVLIMID [Suspect]
     Route: 048
     Dates: start: 20090901

REACTIONS (4)
  - CARDIAC DISORDER [None]
  - DIZZINESS [None]
  - MUSCULAR WEAKNESS [None]
  - PAIN IN EXTREMITY [None]
